FAERS Safety Report 4853385-6 (Version None)
Quarter: 2005Q4

REPORT INFORMATION
  Report Type: 
  Country: None (occurrence: None)
  Receive Date: 20051214
  Receipt Date: 20051205
  Transmission Date: 20060501
  Serious: Yes (Hospitalization)
  Sender: FDA-Public Use
  Company Number: US-MERCK-0512USA00677

PATIENT
  Age: 70 Year
  Sex: Male
  Weight: 70 kg

DRUGS (2)
  1. VIOXX [Suspect]
     Indication: ARTHRITIS
     Route: 048
     Dates: start: 19991201, end: 20041001
  2. VIOXX [Suspect]
     Route: 048
     Dates: start: 19991201, end: 20041001

REACTIONS (3)
  - ANIMAL BITE [None]
  - MYOCARDIAL INFARCTION [None]
  - ROTATOR CUFF REPAIR [None]
